FAERS Safety Report 20253223 (Version 3)
Quarter: 2022Q1

REPORT INFORMATION
  Report Type: Spontaneous
  Country: NO (occurrence: NO)
  Receive Date: 20211229
  Receipt Date: 20220204
  Transmission Date: 20220423
  Serious: Yes (Hospitalization, Other)
  Sender: FDA-Public Use
  Company Number: None

PATIENT
  Age: 85 Year
  Sex: Male

DRUGS (5)
  1. DOPTELET [Suspect]
     Active Substance: AVATROMBOPAG MALEATE
     Indication: Immune thrombocytopenia
     Dosage: STARTED WITH 20 MG DAILY, DOSE REDUCED AND INCREASED AGAIN ACCORDING TO FLUCTUATIONS IN THROMBOCYTE
     Route: 048
     Dates: start: 20210923, end: 202111
  2. BACTRIM [Concomitant]
     Active Substance: SULFAMETHOXAZOLE\TRIMETHOPRIM
     Indication: Pneumonia
     Dosage: 10 DAYS TREATMENT?J01EE01-SULFAMETHOXAZOLE 400 MG AND TRIMETHOPRIM 80 ,G
     Route: 048
     Dates: start: 20211109
  3. BICALUTAMIDE [Concomitant]
     Active Substance: BICALUTAMIDE
     Indication: Prostate cancer
     Dosage: L02BB03-BICALUTAMIDE
     Route: 048
     Dates: start: 2010
  4. SOTALOL [Concomitant]
     Active Substance: SOTALOL
     Indication: Atrial fibrillation
     Dosage: C07AA07 - SOTALOL
     Route: 048
     Dates: start: 2008
  5. ELIQUIS [Concomitant]
     Active Substance: APIXABAN
     Indication: Atrial fibrillation
     Dosage: 2,5 MG. THE PATIENT HAS PAUSED THE TREATMENT SEVERAL TIMES BECAUSE OF LOW THROMBOCYTE COUNT. THE REP
     Route: 048
     Dates: start: 2016

REACTIONS (2)
  - Embolic cerebral infarction [Recovering/Resolving]
  - Product dose omission in error [Recovering/Resolving]

NARRATIVE: CASE EVENT DATE: 20211115
